FAERS Safety Report 4830859-5 (Version None)
Quarter: 2005Q4

REPORT INFORMATION
  Report Type: 
  Country: None (occurrence: None)
  Receive Date: 20051114
  Receipt Date: 20051018
  Transmission Date: 20060501
  Serious: Yes (Hospitalization)
  Sender: FDA-Public Use
  Company Number: S05-FRA-03799-01

PATIENT
  Age: 19 Year
  Sex: Female

DRUGS (6)
  1. SERPOPLEX (ESCITALOPRAM) [Suspect]
     Dosage: 10 MG QD PO
     Route: 048
     Dates: start: 20050901, end: 20050903
  2. SULFAMETHOXAZOLE [Concomitant]
  3. NORVIR [Concomitant]
  4. EPIVIR [Concomitant]
  5. VIREAD [Concomitant]
  6. FOSAMPRENAVIR [Concomitant]

REACTIONS (7)
  - BRAIN SCAN ABNORMAL [None]
  - CEREBRAL DISORDER [None]
  - DYSARTHRIA [None]
  - DYSKINESIA [None]
  - HEADACHE [None]
  - INFLAMMATION [None]
  - NYSTAGMUS [None]
